FAERS Safety Report 8354219 (Version 6)
Quarter: 2014Q4

REPORT INFORMATION
  Report Type: Report from Study
  Country: US (occurrence: US)
  Receive Date: 20120125
  Receipt Date: 20141121
  Transmission Date: 20150529
  Serious: Yes (Other)
  Sender: FDA-Public Use
  Company Number: PHEH2012US001382

PATIENT
  Age: 47 Year
  Sex: Male

DRUGS (6)
  1. RITALIN LA [Suspect]
     Active Substance: METHYLPHENIDATE HYDROCHLORIDE
     Indication: ATTENTION DEFICIT/HYPERACTIVITY DISORDER
     Dosage: 40 MG, UNK
     Route: 065
  2. METHYLPHENIDATE [Suspect]
     Active Substance: METHYLPHENIDATE
     Indication: PRODUCT USED FOR UNKNOWN INDICATION
     Dosage: UNK
     Route: 065
  3. RITALIN [Suspect]
     Active Substance: METHYLPHENIDATE HYDROCHLORIDE
     Indication: PRODUCT USED FOR UNKNOWN INDICATION
     Route: 065
  4. KLONOPIN [Concomitant]
     Active Substance: CLONAZEPAM
     Indication: TREMOR
     Dosage: 2 MG, TID
     Route: 065
  5. KLONOPIN [Concomitant]
     Active Substance: CLONAZEPAM
     Dosage: 2 MG, QID
     Route: 065
  6. METHADONE [Concomitant]
     Active Substance: METHADONE HYDROCHLORIDE
     Indication: PRODUCT USED FOR UNKNOWN INDICATION
     Dosage: 10 MG, QID
     Route: 065

REACTIONS (21)
  - Lumbar spinal stenosis [Unknown]
  - Neoplasm malignant [Unknown]
  - Fall [Unknown]
  - Memory impairment [Unknown]
  - Abnormal behaviour [Unknown]
  - Staphylococcal infection [Unknown]
  - Intervertebral disc protrusion [Unknown]
  - Insomnia [Unknown]
  - Anxiety [Unknown]
  - Malaise [Unknown]
  - Bone pain [Unknown]
  - Obsessive-compulsive disorder [Unknown]
  - Fractured coccyx [Unknown]
  - Withdrawal syndrome [Unknown]
  - Accident [Unknown]
  - Back pain [Unknown]
  - Feeling abnormal [Unknown]
  - Loss of consciousness [Unknown]
  - Stress [Unknown]
  - Aggression [Unknown]
  - Dizziness [Unknown]

NARRATIVE: CASE EVENT DATE: 20010904
